FAERS Safety Report 17837516 (Version 1)
Quarter: 2020Q2

REPORT INFORMATION
  Report Type: Spontaneous
  Country: US (occurrence: US)
  Receive Date: 20200528
  Receipt Date: 20200528
  Transmission Date: 20200714
  Serious: No
  Sender: FDA-Public Use
  Company Number: US-009507513-2005USA007350

PATIENT
  Sex: Female

DRUGS (2)
  1. PROBIOTICS (UNSPECIFIED) [Suspect]
     Active Substance: PROBIOTICS NOS
     Dosage: UNK
     Dates: end: 2020
  2. KEYTRUDA [Suspect]
     Active Substance: PEMBROLIZUMAB

REACTIONS (3)
  - Inappropriate schedule of product administration [Unknown]
  - Thyroid mass [Recovering/Resolving]
  - Therapeutic product effect decreased [Not Recovered/Not Resolved]

NARRATIVE: CASE EVENT DATE: 202002
